FAERS Safety Report 17589037 (Version 4)
Quarter: 2020Q3

REPORT INFORMATION
  Report Type: Spontaneous
  Country: DE (occurrence: DE)
  Receive Date: 20200327
  Receipt Date: 20200921
  Transmission Date: 20201102
  Serious: Yes (Other)
  Sender: FDA-Public Use
  Company Number: DE-TEVA-2020-DE-1213912

PATIENT
  Age: 7 Decade
  Sex: Male

DRUGS (16)
  1. VALSARTAN 1A PLUS 160/12.5 [Suspect]
     Active Substance: HYDROCHLOROTHIAZIDE\VALSARTAN
     Indication: HYPERTENSION
     Dosage: 1 DF CONTAINS 160 MG VALSARTAN AND 12.5 MG HYDROCHLOROTHIAZIDE
     Dates: start: 20170214
  2. ELIQUIS [Concomitant]
     Active Substance: APIXABAN
     Dates: end: 201706
  3. GABAPENTIN 1A PHARMA [Concomitant]
     Active Substance: GABAPENTIN
     Dosage: 600 MILLIGRAM DAILY;
  4. PANTOPRAZOL AL 40 MG [Concomitant]
  5. CLOPIDOGREL AAA 75 MG FILMTABLETTEN [Concomitant]
     Dosage: 75 MILLIGRAM DAILY;
     Dates: start: 201708
  6. DULOXETIN 1A PHARMA [Concomitant]
     Active Substance: DULOXETINE HYDROCHLORIDE
     Dates: end: 201704
  7. PANKREATIN [Concomitant]
     Active Substance: PANCRELIPASE
     Indication: PANCREATIC FAILURE
     Dates: start: 201709
  8. ASS?RATIO PROTECT 100 MG TABLETTEN [Concomitant]
     Dates: end: 201708
  9. VALSARTAN ABZ 80 MG FILMTABLETTEN [Suspect]
     Active Substance: VALSARTAN
     Indication: HYPERTENSION
     Route: 048
     Dates: start: 20170713
  10. RANITIDIN ABZ 300 MG FILMTABLETTEN [Concomitant]
     Active Substance: RANITIDINE
     Dosage: 300 MILLIGRAM DAILY;
  11. FOSTER 100/6 MICROG AXICORP [Concomitant]
  12. ALLOPURINOL. [Concomitant]
     Active Substance: ALLOPURINOL
     Dosage: 1 DOSAGE FORMS DAILY;
  13. VALSARTAN DURA 80 MG [Suspect]
     Active Substance: VALSARTAN
     Indication: HYPERTENSION
     Dates: start: 20180723
  14. VALSACOR 80 MG FILMTABLETTEN [Suspect]
     Active Substance: VALSARTAN
     Indication: HYPERTENSION
     Dates: start: 20181214
  15. TAMSULOSIN [Concomitant]
     Active Substance: TAMSULOSIN
  16. VALSARTAN HENNIG PLUS 160/12.5 [Suspect]
     Active Substance: HYDROCHLOROTHIAZIDE\VALSARTAN
     Indication: HYPERTENSION
     Dosage: 1 DF CONTAINS 160 MG VALSARTAN AND 12.5 MG HYDROCHLOROTHIAZIDE. VALSARTAN HENNIG PLUS 160/12.5
     Dates: start: 20160913

REACTIONS (14)
  - Swelling face [Unknown]
  - Product impurity [Unknown]
  - Headache [Unknown]
  - Swollen tongue [Unknown]
  - Nausea [Unknown]
  - Diarrhoea [Unknown]
  - Fatigue [Unknown]
  - Urticaria [Unknown]
  - Abdominal pain [Unknown]
  - Asthenia [Unknown]
  - Cough [Unknown]
  - Rectal cancer [Unknown]
  - Vertigo [Unknown]
  - Muscle spasms [Unknown]
